FAERS Safety Report 19814162 (Version 3)
Quarter: 2021Q3

REPORT INFORMATION
  Report Type: Report from Study
  Country: US (occurrence: US)
  Receive Date: 20210909
  Receipt Date: 20210930
  Transmission Date: 20211014
  Serious: Yes (Hospitalization, Other)
  Sender: FDA-Public Use
  Company Number: US-TAKEDA-US201945977

PATIENT
  Age: 66 Year
  Sex: Female

DRUGS (23)
  1. RIVAROXABAN [Concomitant]
     Active Substance: RIVAROXABAN
     Indication: PULMONARY EMBOLISM
     Dosage: 35 MILLIGRAM, QD
     Route: 048
     Dates: start: 20200610, end: 2020
  2. RIVAROXABAN [Concomitant]
     Active Substance: RIVAROXABAN
     Dosage: 15 MILLIGRAM, QD
     Route: 048
     Dates: start: 20200610, end: 2020
  3. CEFTRIAXONE. [Concomitant]
     Active Substance: CEFTRIAXONE
     Indication: VASCULAR DEVICE INFECTION
     Dosage: 2 GRAM, QD
     Route: 042
     Dates: start: 20210515, end: 20210528
  4. TEDUGLUTIDE [Suspect]
     Active Substance: TEDUGLUTIDE
     Dosage: 2.95 MILLIGRAM, QD
     Route: 065
     Dates: start: 20190326, end: 201909
  5. TEDUGLUTIDE [Suspect]
     Active Substance: TEDUGLUTIDE
     Dosage: 2.95 MILLIGRAM, QD
     Route: 065
     Dates: start: 20191021
  6. TEDUGLUTIDE [Suspect]
     Active Substance: TEDUGLUTIDE
     Indication: SHORT-BOWEL SYNDROME
     Dosage: 2.95 MILLIGRAM, QD
     Route: 065
     Dates: start: 20190222, end: 20190308
  7. TEDUGLUTIDE [Suspect]
     Active Substance: TEDUGLUTIDE
     Dosage: 2.95 MILLIGRAM, QD
     Route: 065
     Dates: start: 20190308, end: 20190321
  8. TEDUGLUTIDE [Suspect]
     Active Substance: TEDUGLUTIDE
     Dosage: 2.95 MILLIGRAM, QD
     Route: 065
     Dates: start: 20190326, end: 201909
  9. TEDUGLUTIDE [Suspect]
     Active Substance: TEDUGLUTIDE
     Dosage: 2.95 MILLIGRAM, QD
     Route: 065
     Dates: start: 20190308, end: 20190321
  10. MEROPENEM. [Concomitant]
     Active Substance: MEROPENEM
     Indication: VASCULAR DEVICE INFECTION
     Dosage: 1 GRAM, TID
     Route: 042
     Dates: start: 20210514, end: 20210515
  11. TEDUGLUTIDE [Suspect]
     Active Substance: TEDUGLUTIDE
     Indication: SHORT-BOWEL SYNDROME
     Dosage: 2.95 MILLIGRAM, QD
     Route: 065
     Dates: start: 20190222, end: 20190308
  12. TEDUGLUTIDE [Suspect]
     Active Substance: TEDUGLUTIDE
     Dosage: 2.95 MILLIGRAM, QD
     Route: 065
     Dates: start: 20190308, end: 20190321
  13. TEDUGLUTIDE [Suspect]
     Active Substance: TEDUGLUTIDE
     Dosage: 2.95 MILLIGRAM, QD
     Route: 065
     Dates: start: 20191021
  14. MEROPENEM. [Concomitant]
     Active Substance: MEROPENEM
     Dosage: 2 GRAM, QD
     Route: 042
     Dates: start: 20210514, end: 20210514
  15. TEDUGLUTIDE [Suspect]
     Active Substance: TEDUGLUTIDE
     Indication: SHORT-BOWEL SYNDROME
     Dosage: 2.95 MILLIGRAM, QD
     Route: 065
     Dates: start: 20190222, end: 20190308
  16. TEDUGLUTIDE [Suspect]
     Active Substance: TEDUGLUTIDE
     Dosage: 2.95 MILLIGRAM, QD
     Route: 065
     Dates: start: 20191021
  17. HEPARIN [Concomitant]
     Active Substance: HEPARIN SODIUM
     Indication: PULMONARY EMBOLISM
     Dosage: 999999 GTT DROPS
     Route: 042
     Dates: start: 20200604, end: 20200609
  18. TEDUGLUTIDE [Suspect]
     Active Substance: TEDUGLUTIDE
     Dosage: 2.95 MILLIGRAM, QD
     Route: 065
     Dates: start: 20190308, end: 20190321
  19. CEFTRIAXONE. [Concomitant]
     Active Substance: CEFTRIAXONE
     Dosage: 2 GRAM, QD
     Route: 042
     Dates: start: 20210325, end: 20210402
  20. TEDUGLUTIDE [Suspect]
     Active Substance: TEDUGLUTIDE
     Indication: SHORT-BOWEL SYNDROME
     Dosage: 2.95 MILLIGRAM, QD
     Route: 065
     Dates: start: 20190222, end: 20190308
  21. TEDUGLUTIDE [Suspect]
     Active Substance: TEDUGLUTIDE
     Dosage: 2.95 MILLIGRAM, QD
     Route: 065
     Dates: start: 20190326, end: 201909
  22. TEDUGLUTIDE [Suspect]
     Active Substance: TEDUGLUTIDE
     Dosage: 2.95 MILLIGRAM, QD
     Route: 065
     Dates: start: 20190326, end: 201909
  23. TEDUGLUTIDE [Suspect]
     Active Substance: TEDUGLUTIDE
     Dosage: 2.95 MILLIGRAM, QD
     Route: 065
     Dates: start: 20191021

REACTIONS (8)
  - Pulmonary embolism [Recovered/Resolved]
  - Urinary tract infection [Recovered/Resolved]
  - Bacteraemia [Recovered/Resolved]
  - COVID-19 [Recovered/Resolved]
  - Vascular device infection [Recovered/Resolved]
  - Stoma site inflammation [Recovered/Resolved]
  - Leukopenia [Recovered/Resolved]
  - Stoma complication [Recovered/Resolved]

NARRATIVE: CASE EVENT DATE: 20190305
